FAERS Safety Report 16047625 (Version 2)
Quarter: 2019Q1

REPORT INFORMATION
  Report Type: Spontaneous
  Country: JP (occurrence: JP)
  Receive Date: 20190307
  Receipt Date: 20190308
  Transmission Date: 20190418
  Serious: Yes (Other)
  Sender: FDA-Public Use
  Company Number: JP-BAYER-2019-043374

PATIENT
  Weight: 1.05 kg

DRUGS (7)
  1. BAYASPIRIN 100 MG [Suspect]
     Active Substance: ASPIRIN
     Indication: CEREBRAL INFARCTION
     Dosage: DAILY DOSE 100 MG
     Route: 064
  2. WARFARIN [Concomitant]
     Active Substance: WARFARIN
     Dosage: DAILY DOSE 3 MG
     Route: 064
  3. BAYASPIRIN 100 MG [Suspect]
     Active Substance: ASPIRIN
     Indication: ARRHYTHMIA SUPRAVENTRICULAR
  4. PROPOFOL. [Concomitant]
     Active Substance: PROPOFOL
     Indication: CAESAREAN SECTION
     Dosage: 120 MG, ONCE
     Route: 064
  5. VITAMIN K [VITAMIN K NOS] [Concomitant]
  6. ROCURONIUM [Concomitant]
     Active Substance: ROCURONIUM BROMIDE
     Indication: CAESAREAN SECTION
     Dosage: 50 MG (0.9 MG/KG), ONCE
     Route: 064
  7. OXYGEN. [Concomitant]
     Active Substance: OXYGEN
     Dosage: 10 L/MIN
     Route: 064

REACTIONS (5)
  - Foetal distress syndrome [None]
  - Foetal exposure during pregnancy [None]
  - Foetal anaemia [None]
  - Low birth weight baby [None]
  - Premature baby [None]
